FAERS Safety Report 22217319 (Version 1)
Quarter: 2023Q2

REPORT INFORMATION
  Report Type: Other
  Country: AE (occurrence: None)
  Receive Date: 20230417
  Receipt Date: 20230417
  Transmission Date: 20230722
  Serious: Yes (Other)
  Sender: FDA-Public Use
  Company Number: AE-ROCHE-3328901

PATIENT
  Age: 21 Year
  Sex: Female

DRUGS (1)
  1. OCREVUS [Suspect]
     Active Substance: OCRELIZUMAB
     Indication: Relapsing-remitting multiple sclerosis
     Route: 042
     Dates: start: 20211109

REACTIONS (6)
  - Diplopia [Unknown]
  - Vision blurred [Unknown]
  - Gait disturbance [Unknown]
  - Hypoacusis [Unknown]
  - Memory impairment [Unknown]
  - Mood swings [Unknown]
